FAERS Safety Report 7875836-5 (Version None)
Quarter: 2011Q4

REPORT INFORMATION
  Report Type: 
  Country: None (occurrence: None)
  Receive Date: 20111031
  Receipt Date: 20111019
  Transmission Date: 20120403
  Serious: Yes (Other)
  Sender: FDA-Public Use
  Company Number: PHFR2011IE06079

PATIENT
  Sex: Male

DRUGS (9)
  1. GLUCOPHAGE [Concomitant]
     Dosage: 500 MG, BID
  2. OMNEXEL [Concomitant]
     Dosage: 400 MG
  3. VESITIRIM [Concomitant]
     Dosage: 10 MG
  4. CLOZARIL [Suspect]
     Dosage: 50 MG
     Dates: start: 20091001
  5. ASPIRIN [Concomitant]
     Dosage: 75 MG
  6. LIPITOR [Concomitant]
     Dosage: 20 MG
  7. RAMIPRIL [Concomitant]
     Dosage: 2.5 MG
  8. CITALOPRAM HYDROBROMIDE [Concomitant]
     Dosage: 20 MG, MORNING
  9. CLOZARIL [Suspect]
     Indication: SCHIZOPHRENIA
     Dosage: 600 MG, UNK
     Route: 048
     Dates: start: 19950802

REACTIONS (4)
  - AORTIC ANEURYSM [None]
  - HYPERCHOLESTEROLAEMIA [None]
  - HYPERTENSION [None]
  - TYPE 2 DIABETES MELLITUS [None]
